FAERS Safety Report 24670617 (Version 1)
Quarter: 2024Q4

REPORT INFORMATION
  Report Type: Spontaneous
  Country: JP (occurrence: JP)
  Receive Date: 20241127
  Receipt Date: 20241127
  Transmission Date: 20250114
  Serious: Yes (Life-Threatening, Hospitalization, Other)
  Sender: ASTELLAS
  Company Number: JP-ASTELLAS-2024-AER-001647

PATIENT
  Age: 72 Year
  Sex: Male

DRUGS (8)
  1. PADCEV [Suspect]
     Active Substance: ENFORTUMAB VEDOTIN\ENFORTUMAB VEDOTIN-EJFV
     Indication: Transitional cell carcinoma
     Dosage: 1.25 MG/KG ON DAYS 1, 8, AND 15 FOR A 28-DAY CYCLE
     Route: 065
  2. PEMBROLIZUMAB [Concomitant]
     Active Substance: PEMBROLIZUMAB
     Indication: Transitional cell carcinoma
     Route: 065
  3. ANAGLIPTIN [Concomitant]
     Active Substance: ANAGLIPTIN
     Indication: Diabetes mellitus
     Route: 048
  4. NOREPINEPHRINE [Concomitant]
     Active Substance: NOREPINEPHRINE\NOREPINEPHRINE BITARTRATE
     Indication: Cardiovascular disorder
     Route: 065
  5. NOREPINEPHRINE [Concomitant]
     Active Substance: NOREPINEPHRINE\NOREPINEPHRINE BITARTRATE
     Indication: Hypovolaemia
  6. NOREPINEPHRINE [Concomitant]
     Active Substance: NOREPINEPHRINE\NOREPINEPHRINE BITARTRATE
     Indication: Inflammation
  7. TAZ/PIPC [Concomitant]
     Indication: Product used for unknown indication
     Route: 065
  8. FILGRASTIM [Concomitant]
     Active Substance: FILGRASTIM
     Indication: Product used for unknown indication
     Route: 065

REACTIONS (6)
  - Hyperglycaemia [Recovered/Resolved]
  - Febrile neutropenia [Unknown]
  - Acute kidney injury [Recovered/Resolved]
  - Neuropathy peripheral [Unknown]
  - Sepsis [Recovered/Resolved]
  - Rash [Unknown]
